FAERS Safety Report 7208972-7 (Version None)
Quarter: 2011Q1

REPORT INFORMATION
  Report Type: 
  Country: None (occurrence: None)
  Receive Date: 20110104
  Receipt Date: 20101221
  Transmission Date: 20110831
  Serious: Yes (Death, Hospitalization, Other)
  Sender: FDA-Public Use
  Company Number: JP-CELGENEUS-087-21880-10112253

PATIENT
  Sex: Male

DRUGS (29)
  1. ATARAX [Concomitant]
  2. HYPEN [Concomitant]
     Route: 048
     Dates: start: 20101026, end: 20101028
  3. ATARAX [Concomitant]
     Indication: MULTIPLE MYELOMA
     Route: 048
     Dates: start: 20101024, end: 20101024
  4. MIYA BM [Concomitant]
     Indication: MULTIPLE MYELOMA
     Route: 048
     Dates: start: 20101017, end: 20101027
  5. COLONEL [Concomitant]
  6. NOVAMIN [Concomitant]
     Indication: MULTIPLE MYELOMA
     Route: 048
     Dates: start: 20101025, end: 20101025
  7. SERENACE [Concomitant]
     Route: 041
     Dates: start: 20101028, end: 20101029
  8. REVLIMID [Suspect]
     Indication: MULTIPLE MYELOMA
     Route: 048
     Dates: start: 20101021, end: 20101028
  9. COLONEL [Concomitant]
     Indication: MULTIPLE MYELOMA
     Route: 048
     Dates: start: 20101007, end: 20101023
  10. OXINORM [Concomitant]
     Route: 048
     Dates: start: 20101025, end: 20101027
  11. ZOMETA [Concomitant]
     Indication: MULTIPLE MYELOMA
     Route: 051
     Dates: start: 20101026, end: 20101026
  12. TERPERAN [Concomitant]
     Indication: MULTIPLE MYELOMA
     Route: 041
     Dates: start: 20101028, end: 20101029
  13. VALGANCICLOVIR [Concomitant]
     Indication: CYTOMEGALOVIRUS INFECTION
     Route: 048
     Dates: start: 20101020, end: 20101027
  14. VALGANCICLOVIR [Concomitant]
     Indication: PLATELET COUNT DECREASED
  15. SERENACE [Concomitant]
     Indication: MULTIPLE MYELOMA
     Route: 048
     Dates: start: 20101025, end: 20101027
  16. C-PARA [Concomitant]
     Indication: MULTIPLE MYELOMA
     Route: 041
     Dates: start: 20101025, end: 20101029
  17. C-PARA [Concomitant]
  18. TERPERAN [Concomitant]
  19. MIYA BM [Concomitant]
     Route: 048
     Dates: start: 20101028, end: 20101029
  20. ENSURE LIQUID [Concomitant]
     Indication: MULTIPLE MYELOMA
     Route: 048
     Dates: start: 20101007, end: 20101027
  21. ENSURE LIQUID [Concomitant]
  22. OXINORM [Concomitant]
     Indication: MULTIPLE MYELOMA
     Route: 048
     Dates: start: 20101024, end: 20101029
  23. OXINORM [Concomitant]
     Route: 048
     Dates: start: 20101028, end: 20101028
  24. OXINORM [Concomitant]
     Route: 048
     Dates: start: 20101029, end: 20101029
  25. MORPHINE HYDROCHLORIDE [Concomitant]
     Indication: MULTIPLE MYELOMA
     Route: 051
     Dates: start: 20101028, end: 20101028
  26. NOVAMIN [Concomitant]
     Route: 048
     Dates: start: 20101026, end: 20101028
  27. ZOMETA [Concomitant]
  28. HYPEN [Concomitant]
     Indication: MULTIPLE MYELOMA
     Route: 048
     Dates: start: 20101025, end: 20101025
  29. MORPHINE HYDROCHLORIDE [Concomitant]

REACTIONS (7)
  - BLOOD POTASSIUM INCREASED [None]
  - BLOOD SODIUM DECREASED [None]
  - MULTIPLE MYELOMA [None]
  - PLATELET COUNT DECREASED [None]
  - ANAEMIA [None]
  - BLOOD CHLORIDE DECREASED [None]
  - BLOOD UREA INCREASED [None]
